FAERS Safety Report 12421846 (Version 2)
Quarter: 2016Q2

REPORT INFORMATION
  Report Type: Report from Study
  Country: US (occurrence: US)
  Receive Date: 20160531
  Receipt Date: 20160629
  Transmission Date: 20160815
  Serious: Yes (Life-Threatening, Hospitalization, Other)
  Sender: FDA-Public Use
  Company Number: US-009507513-1605USA013479

PATIENT
  Age: 12 Year
  Sex: Male
  Weight: 50 kg

DRUGS (13)
  1. METHOTREXATE SODIUM. [Suspect]
     Active Substance: METHOTREXATE SODIUM
     Indication: ANAPLASTIC LARGE CELL LYMPHOMA T- AND NULL-CELL TYPES
     Dosage: REGIMEN#2 COURSE A: CYCLES 1,3 AND 5 (CYCLE=21 DAYS),3000 MG/M2, OVER3 HOURS ON DAY 1
     Route: 042
  2. LEUCOVORIN. [Concomitant]
     Active Substance: LEUCOVORIN
     Dosage: UNK
     Dates: start: 20160123, end: 20160124
  3. LEUCOVORIN. [Concomitant]
     Active Substance: LEUCOVORIN
     Dosage: UNK
     Dates: start: 20160313, end: 20160315
  4. DEXAMETHASONE. [Suspect]
     Active Substance: DEXAMETHASONE
     Indication: ANAPLASTIC LARGE CELL LYMPHOMA T- AND NULL-CELL TYPES
     Dosage: REGIMEN #2 COURSE A: CYCLES 1, 3 AND 5 (CYCLE= 21 DAYS): 5 MG/M2, BLD ON DAYS 1-5
     Route: 048
  5. CRIZOTINIB [Suspect]
     Active Substance: CRIZOTINIB
     Indication: ANAPLASTIC LARGE CELL LYMPHOMA T- AND NULL-CELL TYPES
     Dosage: REGIMEN# 2 COURSE B: CYCLES 2, 4 AND 6 (CYCLE= 21 DAYS),165 MG/M2, BID ON DAYS 1-21, 6TH CYCLE
     Route: 048
     Dates: start: 20160402, end: 20160411
  6. CYCLOPHOSPHAMIDE. [Suspect]
     Active Substance: CYCLOPHOSPHAMIDE
     Indication: ANAPLASTIC LARGE CELL LYMPHOMA T- AND NULL-CELL TYPES
     Dosage: REGIMEN#2 COURSEB: CYCLES 2, 4 AND 6 CYCLE=21DAYS: 200MG/M2, OVER 15-30 MINUTES ON DAYS1-5, 6TH CYCL
     Route: 042
     Dates: start: 20160402, end: 20160406
  7. LEUCOVORIN. [Concomitant]
     Active Substance: LEUCOVORIN
     Dosage: UNK
     Dates: start: 20151231, end: 20160301
  8. LEUCOVORIN. [Concomitant]
     Active Substance: LEUCOVORIN
     Dosage: UNK
     Dates: start: 20160221, end: 20160222
  9. DEXAMETHASONE. [Suspect]
     Active Substance: DEXAMETHASONE
     Dosage: REGIMEN #3 COURSE B: CYCLES 2, 4 AND 6 (CYCLE= 21 DAYS), 5 MG/M2 BLD ON DAYS 1-5; 6TH CYCLE
     Route: 048
     Dates: start: 20160402, end: 20160406
  10. CRIZOTINIB [Suspect]
     Active Substance: CRIZOTINIB
     Dosage: 165MG/M2, BID, ON DAYS 1-21 GIVEN ON CYCLES 1, 3 AND 5 (CYCLE WAS 21 DAYS)
     Route: 048
  11. METHOTREXATE SODIUM. [Suspect]
     Active Substance: METHOTREXATE SODIUM
     Dosage: REGIMEN#3 COURSE B: CYCLES, 2,4 AND 6 (CYCLE=21DAYS): 3000 MG/M2, OVER3 HOURS ON DAY1, 6 TH CYCLE
     Route: 042
     Dates: start: 20160402, end: 20160402
  12. LEUCOVORIN. [Concomitant]
     Active Substance: LEUCOVORIN
     Dosage: UNK
     Dates: start: 20160403, end: 20160409
  13. DOXORUBICIN HYDROCHLORIDE. [Suspect]
     Active Substance: DOXORUBICIN HYDROCHLORIDE
     Indication: ANAPLASTIC LARGE CELL LYMPHOMA T- AND NULL-CELL TYPES
     Dosage: COURSE B: CYCLES 2,4 AND 6 CYCLE=21DAYS: 25 MG/M2 OVER 1-15 MIN ON DAYS 4 AND 5, 6TH CYCLE
     Route: 042
     Dates: start: 20160405, end: 20160406

REACTIONS (11)
  - Thrombocytopenia [Unknown]
  - Anaemia [Unknown]
  - Hypotension [Unknown]
  - Pulmonary oedema [Unknown]
  - Stomatitis [Unknown]
  - Sinus tachycardia [Unknown]
  - Leptotrichia infection [Unknown]
  - Febrile neutropenia [Unknown]
  - Sepsis [Unknown]
  - Rhinovirus infection [Unknown]
  - Respiratory failure [Unknown]

NARRATIVE: CASE EVENT DATE: 201604
